FAERS Safety Report 9739289 (Version 2)
Quarter: 2014Q1

REPORT INFORMATION
  Report Type: Report from Study
  Country: PE (occurrence: PE)
  Receive Date: 20131209
  Receipt Date: 20140320
  Transmission Date: 20141002
  Serious: No
  Sender: FDA-Public Use
  Company Number: PE-ELI_LILLY_AND_COMPANY-PE201311008809

PATIENT
  Age: 60 Year
  Sex: Female

DRUGS (1)
  1. DULOXETINE HYDROCHLORIDE [Suspect]
     Indication: STRESS
     Dosage: 30 MG, UNKNOWN
     Route: 065
     Dates: start: 20130715, end: 201311

REACTIONS (3)
  - Off label use [Unknown]
  - Dyspepsia [Recovering/Resolving]
  - Intentional drug misuse [Recovered/Resolved]
